FAERS Safety Report 4723597-0 (Version None)
Quarter: 2005Q3

REPORT INFORMATION
  Report Type: 
  Country: None (occurrence: None)
  Receive Date: 20050721
  Receipt Date: 20050714
  Transmission Date: 20060218
  Serious: Yes (Hospitalization)
  Sender: FDA-Public Use
  Company Number: 2005-01360

PATIENT
  Age: 18 Year
  Sex: Male

DRUGS (2)
  1. MENACTRA (MENINGOCOCCAL A, C, Y + W135 (D CONJ.) VACCINE [Suspect]
     Indication: IMMUNISATION
     Dosage: I.M.
     Route: 030
     Dates: start: 20050610
  2. TUBERSOL [Suspect]
     Indication: TUBERCULIN TEST
     Dosage: I.D.
     Dates: start: 20050610

REACTIONS (1)
  - GUILLAIN-BARRE SYNDROME [None]
